FAERS Safety Report 4305706-0 (Version None)
Quarter: 2004Q1

REPORT INFORMATION
  Report Type: 
  Country: None (occurrence: None)
  Receive Date: 20040225
  Receipt Date: 20040216
  Transmission Date: 20041129
  Serious: Yes (Hospitalization)
  Sender: FDA-Public Use
  Company Number: 2004UW02713

PATIENT
  Age: 66 Year
  Sex: Male

DRUGS (2)
  1. ZD1839 [Suspect]
     Indication: TONGUE NEOPLASM MALIGNANT STAGE UNSPECIFIED
     Dosage: 250 MG DAILY PO
     Route: 048
  2. IBUPROFEN [Concomitant]

REACTIONS (3)
  - RECURRENT CANCER [None]
  - TONGUE NEOPLASM MALIGNANT STAGE UNSPECIFIED [None]
  - TUMOUR HAEMORRHAGE [None]
